FAERS Safety Report 5759553-3 (Version None)
Quarter: 2008Q2

REPORT INFORMATION
  Report Type: 
  Country: None (occurrence: None)
  Receive Date: 20080604
  Receipt Date: 20080604
  Transmission Date: 20081010
  Serious: Yes (Hospitalization)
  Sender: FDA-Public Use
  Company Number: None

PATIENT
  Sex: Male
  Weight: 77.1115 kg

DRUGS (1)
  1. DIGITEK 0.25 MG [Suspect]
     Indication: ATRIAL FIBRILLATION
     Dosage: 0.25 MG QD PO
     Route: 048
     Dates: start: 20080414, end: 20080507

REACTIONS (3)
  - CONFUSIONAL STATE [None]
  - MENTAL STATUS CHANGES [None]
  - NAUSEA [None]
